FAERS Safety Report 6810198-3 (Version None)
Quarter: 2010Q2

REPORT INFORMATION
  Report Type: 
  Country: None (occurrence: None)
  Receive Date: 20100630
  Receipt Date: 20100625
  Transmission Date: 20101027
  Serious: Yes (Life-Threatening, Hospitalization, Other)
  Sender: FDA-Public Use
  Company Number: FR-KINGPHARMUSA00001-K201000808

PATIENT
  Age: 61 Year
  Sex: Male

DRUGS (5)
  1. ALTACE [Suspect]
     Dosage: 5 MG, BID
     Route: 048
     Dates: start: 20050101, end: 20100410
  2. SPIRONOLACTONE [Suspect]
     Dosage: 50 MG, QD
     Route: 048
     Dates: start: 20090713, end: 20100410
  3. SPIRONOLACTONE [Suspect]
     Dosage: UNK
     Dates: start: 20100420, end: 20100422
  4. XENETIX [Suspect]
     Indication: CATHETERISATION CARDIAC
     Dosage: 81387 MG, SINGLE
     Route: 042
     Dates: start: 20100419, end: 20100419
  5. PROPOFOL [Suspect]
     Indication: SEDATION
     Dosage: 80 MG, SINGLE
     Route: 042
     Dates: start: 20100330, end: 20100330

REACTIONS (10)
  - BLOOD CREATININE INCREASED [None]
  - CARDIAC FAILURE [None]
  - DIABETIC NEPHROPATHY [None]
  - DYSPNOEA [None]
  - HYPERKALAEMIA [None]
  - NEPHROPATHY TOXIC [None]
  - OEDEMA [None]
  - RENAL FAILURE ACUTE [None]
  - RENAL IMPAIRMENT [None]
  - WEIGHT INCREASED [None]
